FAERS Safety Report 13650875 (Version 1)
Quarter: 2017Q2

REPORT INFORMATION
  Report Type: Spontaneous
  Country: US (occurrence: US)
  Receive Date: 20170614
  Receipt Date: 20170614
  Transmission Date: 20170830
  Serious: No
  Sender: FDA-Public Use
  Company Number: None

PATIENT
  Age: 46 Year
  Sex: Female
  Weight: 69.85 kg

DRUGS (1)
  1. NUVARING [Suspect]
     Active Substance: ETHINYL ESTRADIOL\ETONOGESTREL
     Indication: CONTRACEPTION
     Dosage: ETONOGESTRAL 120/MCG/ML E.ESTRADIOL 15MG/ML 1X/MO PER VAGINA
     Route: 067
     Dates: start: 20130701, end: 20130711

REACTIONS (3)
  - Peripheral swelling [None]
  - Homans^ sign positive [None]
  - Pain in extremity [None]

NARRATIVE: CASE EVENT DATE: 20130711
